FAERS Safety Report 5209194-1 (Version None)
Quarter: 2007Q1

REPORT INFORMATION
  Report Type: 
  Country: None (occurrence: None)
  Receive Date: 20070111
  Receipt Date: 20070108
  Transmission Date: 20070707
  Serious: Yes (Other)
  Sender: FDA-Public Use
  Company Number: HQWYE062101NOV06

PATIENT
  Age: 42 Year
  Sex: Female
  Weight: 59.02 kg

DRUGS (7)
  1. PREMARIN [Suspect]
     Indication: HORMONE REPLACEMENT THERAPY
     Dosage: 1.25 MG 1X PER 1 DAY ORAL
     Route: 048
     Dates: start: 19960101, end: 20000214
  2. PREMARIN [Suspect]
     Indication: HYSTERECTOMY
     Dosage: 1.25 MG 1X PER 1 DAY ORAL
     Route: 048
     Dates: start: 19960101, end: 20000214
  3. LORTAB [Concomitant]
  4. CELLCEPT [Concomitant]
  5. ZYRTEC [Concomitant]
  6. PROZAC [Concomitant]
  7. GERITOL (VITAMINS NOS) [Concomitant]

REACTIONS (2)
  - ARTHRALGIA [None]
  - SYSTEMIC LUPUS ERYTHEMATOSUS [None]
